FAERS Safety Report 8421594-5 (Version None)
Quarter: 2012Q2

REPORT INFORMATION
  Report Type: 
  Country: None (occurrence: None)
  Receive Date: 20120605
  Receipt Date: 20120605
  Transmission Date: 20120825
  Serious: Yes (Other)
  Sender: FDA-Public Use
  Company Number: None

PATIENT
  Age: 67 Year
  Sex: Female
  Weight: 77.1115 kg

DRUGS (1)
  1. CEPHALEXIN [Suspect]
     Indication: LOCALISED INFECTION
     Dosage: 3X DAILY 10 DAYS
     Dates: start: 20120511, end: 20120515

REACTIONS (4)
  - RASH GENERALISED [None]
  - CONTUSION [None]
  - PRURITUS [None]
  - DYSPNOEA [None]
